FAERS Safety Report 17711631 (Version 1)
Quarter: 2020Q2

REPORT INFORMATION
  Report Type: Spontaneous
  Country: US (occurrence: US)
  Receive Date: 20200425
  Receipt Date: 20200425
  Transmission Date: 20200714
  Serious: Yes (Hospitalization, Other)
  Sender: FDA-Public Use
  Company Number: None

PATIENT
  Age: 61 Year
  Sex: Female
  Weight: 78.75 kg

DRUGS (2)
  1. BOTOX [Suspect]
     Active Substance: ONABOTULINUMTOXINA
     Indication: TORTICOLLIS
     Dosage: ?          OTHER STRENGTH:200 UNITS;?
     Route: 030
     Dates: start: 20181220, end: 20191223
  2. LISINIPRIL [Concomitant]
     Active Substance: LISINOPRIL

REACTIONS (4)
  - Dysphagia [None]
  - Sensation of foreign body [None]
  - Palatal disorder [None]
  - Choking [None]

NARRATIVE: CASE EVENT DATE: 20191230
